FAERS Safety Report 22611512 (Version 1)
Quarter: 2023Q2

REPORT INFORMATION
  Report Type: Spontaneous
  Country: US (occurrence: US)
  Receive Date: 20230616
  Receipt Date: 20230616
  Transmission Date: 20230721
  Serious: Yes (Death)
  Sender: FDA-Public Use
  Company Number: US-BRISTOL-MYERS SQUIBB COMPANY-2023-085112

PATIENT
  Age: 25 Year
  Sex: Male

DRUGS (2)
  1. OPDIVO [Suspect]
     Active Substance: NIVOLUMAB
     Indication: Plasma cell leukaemia
     Dosage: DOSE : OP 63.8 MG /YERVOY 194.2 MG;     FREQ : YERVOY EVERY 21 DAYS ?OPDIVO EVERY 28 DAYS
     Route: 042
  2. YERVOY [Suspect]
     Active Substance: IPILIMUMAB
     Indication: Plasma cell leukaemia
     Dosage: DOSE : OP 63.8 MG /YERVOY 194.2 MG;     FREQ : YERVOY EVERY 21 DAYS ?OPDIVO EVERY 28 DAYS
     Route: 042

REACTIONS (2)
  - Death [Fatal]
  - Off label use [Unknown]
